FAERS Safety Report 5324140-8 (Version None)
Quarter: 2007Q2

REPORT INFORMATION
  Report Type: 
  Country: None (occurrence: None)
  Receive Date: 20070514
  Receipt Date: 20061228
  Transmission Date: 20071010
  Serious: No
  Sender: FDA-Public Use
  Company Number: A0632864A

PATIENT
  Sex: Male

DRUGS (2)
  1. RELAFEN [Suspect]
     Indication: OSTEOARTHRITIS
     Dosage: 500MG TWICE PER DAY
     Route: 048
     Dates: end: 20060801
  2. EYE DROPS [Concomitant]

REACTIONS (3)
  - DROOLING [None]
  - DYSARTHRIA [None]
  - ILL-DEFINED DISORDER [None]
